FAERS Safety Report 4319276-4 (Version None)
Quarter: 2004Q1

REPORT INFORMATION
  Report Type: 
  Country: None (occurrence: None)
  Receive Date: 20040316
  Receipt Date: 20040308
  Transmission Date: 20041129
  Serious: Yes (Life-Threatening)
  Sender: FDA-Public Use
  Company Number: 200410041BFR

PATIENT
  Age: 54 Year
  Sex: Male
  Weight: 45 kg

DRUGS (16)
  1. MOXIFLOXACIN HCL [Suspect]
     Indication: BRONCHITIS ACUTE
     Dosage: ORAL
     Route: 048
     Dates: start: 20030917, end: 20030919
  2. FUROSEMIDE [Concomitant]
  3. COVERSYL [Concomitant]
  4. SOLUPRED [Concomitant]
  5. KALEORID [Concomitant]
  6. ALDACTONE [Concomitant]
  7. OGAST [Concomitant]
  8. TRANXENE [Concomitant]
  9. LUDIOMIL [Concomitant]
  10. ATARAX [Concomitant]
  11. LEVOTHYROXINE SODIUM [Concomitant]
  12. DEXTRO PROPOXYPHENE [Concomitant]
  13. DURAGESIC [Concomitant]
  14. MAXAIR [Concomitant]
  15. SERETIDE (FLUTICONAZONE, SALMETEROL) [Concomitant]
  16. ACETYLCYSTEINE [Concomitant]

REACTIONS (12)
  - ACUTE PULMONARY OEDEMA [None]
  - BUNDLE BRANCH BLOCK RIGHT [None]
  - EJECTION FRACTION DECREASED [None]
  - HYPOKALAEMIA [None]
  - HYPOKINESIA [None]
  - INFLAMMATION [None]
  - MITRAL VALVE INCOMPETENCE [None]
  - OEDEMA PERIPHERAL [None]
  - PULMONARY ARTERIAL PRESSURE INCREASED [None]
  - TRICUSPID VALVE INCOMPETENCE [None]
  - VENTRICULAR HYPERTROPHY [None]
  - VENTRICULAR TACHYCARDIA [None]
